FAERS Safety Report 6134720-8 (Version None)
Quarter: 2009Q1

REPORT INFORMATION
  Report Type: 
  Country: None (occurrence: None)
  Receive Date: 20090325
  Receipt Date: 20090227
  Transmission Date: 20090719
  Serious: Yes (Other)
  Sender: FDA-Public Use
  Company Number: 2009AP000695

PATIENT
  Age: 13 Year
  Sex: Female

DRUGS (4)
  1. VALPROIC ACID [Suspect]
     Indication: CONVULSION
     Dosage: 375 MG, BID
  2. DIVALPROEX SODIUM [Suspect]
  3. VALPROATE SODIUM [Suspect]
  4. DIVALPROEX SODIUM [Suspect]

REACTIONS (7)
  - APLASIA PURE RED CELL [None]
  - DYSPLASIA [None]
  - HEADACHE [None]
  - MARROW HYPERPLASIA [None]
  - MEGAKARYOCYTES ABNORMAL [None]
  - PALLOR [None]
  - PYREXIA [None]
